FAERS Safety Report 6284651-8 (Version None)
Quarter: 2009Q3

REPORT INFORMATION
  Report Type: 
  Country: None (occurrence: None)
  Receive Date: 20090727
  Receipt Date: 20090722
  Transmission Date: 20100115
  Serious: Yes (Hospitalization, Other)
  Sender: FDA-Public Use
  Company Number: CH-JNJFOC-20090705696

PATIENT
  Sex: Female

DRUGS (2)
  1. INFLIXIMAB [Suspect]
     Indication: ANKYLOSING SPONDYLITIS
     Dosage: ON DRUG FOR 34 MONTHS, TOTAL OF 17 INFUSIONS
     Route: 042
  2. METHOTREXATE [Concomitant]
     Route: 058

REACTIONS (1)
  - TUBERCULOSIS [None]
